FAERS Safety Report 4893163-5 (Version None)
Quarter: 2005Q4

REPORT INFORMATION
  Report Type: 
  Country: None (occurrence: None)
  Receive Date: 20051223
  Receipt Date: 20050928
  Transmission Date: 20060501
  Serious: Yes (Hospitalization)
  Sender: FDA-Public Use
  Company Number: PHEH2005US09239

PATIENT
  Age: 18 Year
  Sex: Male
  Weight: 56.2 kg

DRUGS (2)
  1. CLOZARIL [Suspect]
     Indication: SCHIZOPHRENIA
     Dosage: 200MG BID, 300MG, QHS
     Dates: start: 20050827
  2. CLOZARIL [Suspect]
     Dosage: 200MG BID, 350MG QHS, ORAL
     Route: 048
     Dates: start: 20031003, end: 20050826

REACTIONS (2)
  - CONVULSION [None]
  - DROOLING [None]
